FAERS Safety Report 10522690 (Version 1)
Quarter: 2014Q4

REPORT INFORMATION
  Report Type: Spontaneous
  Country: US (occurrence: None)
  Receive Date: 20141010
  Receipt Date: 20141010
  Transmission Date: 20150528
  Serious: Yes (Other)
  Sender: FDA-Public Use
  Company Number: COR_00102_2014

PATIENT
  Age: 24 Year
  Sex: Female

DRUGS (7)
  1. CISPLATIN. [Suspect]
     Active Substance: CISPLATIN
     Indication: OVARIAN CANCER
     Dosage: (90 MG/M2, [OVER 4 HOURS ON DAY 1, FOR 6 CYCLES] INTRAVENOUS (NOT OTHERWISE SPECIFIED))
     Route: 042
  2. PEGFILGRASTIM [Concomitant]
     Active Substance: PEGFILGRASTIM
  3. CYCLOPHOSPHAMIDE. [Suspect]
     Active Substance: CYCLOPHOSPHAMIDE
     Indication: OVARIAN CANCER
     Dosage: (1000 MG/M2, [OVER 60 MINUTES ON DAY 2, FOR 6 CYCLES] INTRAVENOUS (NOT OTHERWISE SPECIFIED))
     Route: 042
  4. ETOPOSIDE. [Suspect]
     Active Substance: ETOPOSIDE
     Indication: OVARIAN CANCER
     Dosage: (200 MG/M2, [OVER 2 HOURS ON DAY 3, FOR 6 CYCLES] INTRAVENOUS (NOT OTHERWISE SPECIFIED))
     Route: 042
  5. VINBLASTINE [Suspect]
     Active Substance: VINBLASTINE
     Indication: OVARIAN CANCER
     Dosage: (6 MG/M2, [OVER 30 MINUTES OF DAY 1, FOR 6 CYCLES] INTRAVENOUS (NOT OTHERWISE SPECIFIED))
     Route: 042
  6. BLEOMYCIN [Suspect]
     Active Substance: BLEOMYCIN SULFATE
     Indication: OVARIAN CANCER
     Dosage: (15 UNITS/M2 [OVER 24 HOURS ON DAY 2, FOR 6 CYCLES] INTRAVENOUS (NOT OTHERWISE SPECIFIED))
     Route: 042
  7. DOXORUBICIN [Suspect]
     Active Substance: DOXORUBICIN
     Indication: OVARIAN CANCER
     Dosage: (45 MG/M2, [OVER 30 MINUTES ON DAY 3, FOR 6 CYCLES] INTRAVENOUS (NOT OTHERWISE SPECIFIED))
     Route: 042

REACTIONS (4)
  - Cellulitis [None]
  - Pancytopenia [None]
  - Mucosal inflammation [None]
  - Bone marrow failure [None]
